FAERS Safety Report 10415155 (Version 1)
Quarter: 2014Q2

REPORT INFORMATION
  Report Type: Spontaneous
  Country: US (occurrence: None)
  Receive Date: 20140604
  Receipt Date: 20140604
  Transmission Date: 20141212
  Serious: No
  Sender: FDA-Public Use
  Company Number: 163-POMAL-14033251

PATIENT
  Sex: Male
  Weight: 84.4 kg

DRUGS (11)
  1. POMALYST (POMALIDOMIDE) (4 MILLIGRAM, CAPSULES) [Suspect]
     Indication: PLASMA CELL MYELOMA
     Route: 048
     Dates: start: 201305
  2. DEXAMETHASONE [Concomitant]
  3. ECOTRIN (ACETYLSALICYLIC ACID) [Concomitant]
  4. PATANASE (OLOPATADINE HYDROCHLORIDE) [Concomitant]
  5. CARVEDILOL [Concomitant]
  6. LISINOPRIL [Concomitant]
  7. GUAIATUSSIN AC (CHERACOL/USA/) [Concomitant]
  8. AZITHROMYCIN [Concomitant]
  9. ACYCLOVIR (ACICLOVIR) [Concomitant]
  10. GUAIFENSIN CODEINE (CHERACOL) [Concomitant]
  11. TYLENOL (PARACETAMOL) [Concomitant]

REACTIONS (3)
  - Throat irritation [None]
  - Cough [None]
  - Nasopharyngitis [None]
